FAERS Safety Report 10209582 (Version 2)
Quarter: 2014Q2

REPORT INFORMATION
  Report Type: Not Available
  Country: US (occurrence: US)
  Receive Date: 20140602
  Receipt Date: 20140602
  Transmission Date: 20141212
  Serious: Yes (Hospitalization)
  Sender: FDA-Public Use
  Company Number: US-BEH-2014042194

PATIENT
  Sex: Female

DRUGS (2)
  1. HIZENTRA [Suspect]
  2. LETAIRIS [Suspect]
     Dosage: 5 MG
     Route: 048

REACTIONS (1)
  - Bronchitis [Unknown]
